FAERS Safety Report 6779475-9 (Version None)
Quarter: 2010Q2

REPORT INFORMATION
  Report Type: 
  Country: None (occurrence: None)
  Receive Date: 20100618
  Receipt Date: 20100610
  Transmission Date: 20101027
  Serious: Yes (Hospitalization)
  Sender: FDA-Public Use
  Company Number: GXKR2010RO06472

PATIENT
  Sex: Male

DRUGS (1)
  1. KETONAL (NGX) [Suspect]
     Indication: ARTHRALGIA
     Dosage: 1 DF, UNK
     Route: 003
     Dates: start: 20100605, end: 20100605

REACTIONS (1)
  - CAUSTIC INJURY [None]
